FAERS Safety Report 23071353 (Version 2)
Quarter: 2023Q4

REPORT INFORMATION
  Report Type: Spontaneous
  Country: IT (occurrence: IT)
  Receive Date: 20231016
  Receipt Date: 20231025
  Transmission Date: 20240110
  Serious: Yes (Hospitalization, Other)
  Sender: FDA-Public Use
  Company Number: IT-ALXN-A202302808

PATIENT
  Sex: Female

DRUGS (3)
  1. ULTOMIRIS [Suspect]
     Active Substance: RAVULIZUMAB-CWVZ
     Dosage: 2100 MG, UNK
     Route: 065
     Dates: start: 20230704
  2. ULTOMIRIS [Suspect]
     Active Substance: RAVULIZUMAB-CWVZ
     Indication: Atypical haemolytic uraemic syndrome
     Dosage: 300 MG, UNK
     Route: 065
     Dates: start: 20230516
  3. ULTOMIRIS [Suspect]
     Active Substance: RAVULIZUMAB-CWVZ
     Dosage: 900 MG, UNK
     Route: 065
     Dates: start: 20230601, end: 20230615

REACTIONS (3)
  - Pericardial effusion [Recovered/Resolved]
  - Oedema [Recovered/Resolved]
  - Polyuria [Unknown]

NARRATIVE: CASE EVENT DATE: 20230920
